FAERS Safety Report 12542045 (Version 2)
Quarter: 2017Q3

REPORT INFORMATION
  Report Type: Report from Study
  Country: ES (occurrence: ES)
  Receive Date: 20160708
  Receipt Date: 20170728
  Transmission Date: 20171127
  Serious: Yes (Hospitalization)
  Sender: FDA-Public Use
  Company Number: ES-SA-2016SA125178

PATIENT
  Age: 9 Year
  Sex: Male
  Weight: 30.6 kg

DRUGS (6)
  1. UNITUXIN [Suspect]
     Active Substance: DINUTUXIMAB
     Indication: NEUROBLASTOMA
     Route: 041
     Dates: start: 20160404, end: 20160407
  2. VANCOMYCIN [Concomitant]
     Active Substance: VANCOMYCIN
     Dates: start: 20160420, end: 20160428
  3. OMEPRAZOLE. [Concomitant]
     Active Substance: OMEPRAZOLE
     Indication: PROPHYLAXIS
  4. GM-CSF [Suspect]
     Active Substance: GRANULOCYTE-MACROPHAGE COLONY-STIMULATING FACTOR
     Indication: NEUROBLASTOMA
     Dosage: UNIT-   3575 UNK
     Route: 065
     Dates: start: 20160401, end: 20170414
  5. INTERLEUKINS [Suspect]
     Active Substance: INTERLEUKIN NOS
     Indication: NEUROBLASTOMA
     Dosage: 0.1 MILLION IU
     Route: 065
     Dates: start: 20160425, end: 20160427
  6. RETINOIC ACID [Suspect]
     Active Substance: TRETINOIN
     Indication: NEUROBLASTOMA
     Route: 065
     Dates: start: 20160411

REACTIONS (2)
  - Sepsis [Recovered/Resolved]
  - Histiocytosis haematophagic [Unknown]

NARRATIVE: CASE EVENT DATE: 20160427
